FAERS Safety Report 13761872 (Version 1)
Quarter: 2017Q3

REPORT INFORMATION
  Report Type: Spontaneous
  Country: US (occurrence: US)
  Receive Date: 20170718
  Receipt Date: 20170718
  Transmission Date: 20171127
  Serious: No
  Sender: FDA-Public Use
  Company Number: US-CELGENEUS-USA-20170701971

PATIENT
  Sex: Female

DRUGS (2)
  1. OTEZLA [Suspect]
     Active Substance: APREMILAST
     Indication: PSORIASIS
     Dosage: 60 MILLIGRAM
     Route: 048
     Dates: start: 201701, end: 201703
  2. OTEZLA [Suspect]
     Active Substance: APREMILAST
     Route: 048
     Dates: start: 201704

REACTIONS (9)
  - Sensitivity of teeth [Unknown]
  - Ocular hyperaemia [Unknown]
  - Dry eye [Unknown]
  - Muscle tightness [Unknown]
  - Pain in extremity [Recovered/Resolved]
  - Psoriasis [Unknown]
  - Wrong technique in product usage process [Unknown]
  - Depression [Unknown]
  - Contusion [Unknown]

NARRATIVE: CASE EVENT DATE: 2017
